FAERS Safety Report 7927976-X (Version None)
Quarter: 2011Q4

REPORT INFORMATION
  Report Type: 
  Country: None (occurrence: None)
  Receive Date: 20111118
  Receipt Date: 20111111
  Transmission Date: 20120403
  Serious: Yes (Other)
  Sender: FDA-Public Use
  Company Number: CH-JNJFOC-20111104092

PATIENT
  Age: 45 Year
  Sex: Male

DRUGS (8)
  1. NEXIUM [Concomitant]
     Route: 065
  2. CEDUR RETARD [Concomitant]
     Route: 065
  3. PALIPERIDONE [Suspect]
     Route: 030
     Dates: start: 20111018
  4. PALIPERIDONE [Suspect]
     Indication: SCHIZOPHRENIA
     Route: 030
     Dates: start: 20111010
  5. INVEGA [Suspect]
     Indication: SCHIZOPHRENIA
     Route: 065
     Dates: start: 20100721
  6. IMIPRAMINE [Concomitant]
     Route: 065
  7. AKINETON [Concomitant]
     Route: 065
     Dates: start: 20100701
  8. VOLTAREN [Concomitant]
     Indication: BACK PAIN
     Route: 030

REACTIONS (3)
  - DIZZINESS [None]
  - HEADACHE [None]
  - SLEEP DISORDER [None]
